FAERS Safety Report 8210178-X (Version None)
Quarter: 2012Q1

REPORT INFORMATION
  Report Type: 
  Country: None (occurrence: None)
  Receive Date: 20120314
  Receipt Date: 20120131
  Transmission Date: 20120608
  Serious: No
  Sender: FDA-Public Use
  Company Number: US-ASTRAZENECA-2012SE05135

PATIENT
  Sex: Female

DRUGS (3)
  1. METOPROLOL SUCCINATE [Suspect]
     Route: 048
  2. METOPROLOL SUCCINATE [Suspect]
     Dosage: USUALLY TAKES HALF TABLET, 12.5 MG
     Route: 048
  3. METOPROLOL SUCCINATE [Suspect]
     Dosage: SOMETIMES TAKES THREE FOURTH OF TABLET
     Route: 048

REACTIONS (10)
  - INCORRECT DOSE ADMINISTERED [None]
  - WRONG TECHNIQUE IN DRUG USAGE PROCESS [None]
  - MALAISE [None]
  - HYPOTENSION [None]
  - OFF LABEL USE [None]
  - THERAPEUTIC RESPONSE INCREASED [None]
  - BLOOD PRESSURE INCREASED [None]
  - ANXIETY [None]
  - STRESS [None]
  - NERVOUSNESS [None]
